FAERS Safety Report 8623046-6 (Version None)
Quarter: 2012Q3

REPORT INFORMATION
  Report Type: 
  Country: None (occurrence: None)
  Receive Date: 20120827
  Receipt Date: 20120820
  Transmission Date: 20120928
  Serious: Yes (Disabling)
  Sender: FDA-Public Use
  Company Number: US-JNJFOC-20120810653

PATIENT
  Sex: Male
  Weight: 30.3 kg

DRUGS (5)
  1. REMICADE [Suspect]
     Route: 042
     Dates: start: 20120216
  2. MIRALAX [Concomitant]
  3. MULTI-VITAMINS [Concomitant]
  4. REMICADE [Suspect]
     Indication: INFLAMMATORY BOWEL DISEASE
     Route: 042
     Dates: start: 20120327
  5. CIPROFLOXACIN HCL [Concomitant]

REACTIONS (1)
  - COUGH [None]
